FAERS Safety Report 14654610 (Version 2)
Quarter: 2018Q2

REPORT INFORMATION
  Report Type: Spontaneous
  Country: AT (occurrence: AT)
  Receive Date: 20180319
  Receipt Date: 20180418
  Transmission Date: 20180711
  Serious: Yes (Other)
  Sender: FDA-Public Use
  Company Number: AT-PFIZER INC-2018103957

PATIENT
  Age: 46 Year
  Sex: Female
  Weight: 63 kg

DRUGS (11)
  1. LONQUEX [Suspect]
     Active Substance: LIPEGFILGRASTIM
     Dosage: CYCLE 3
     Dates: start: 20170928
  2. EPIRUBICIN HCL [Suspect]
     Active Substance: EPIRUBICIN HYDROCHLORIDE
     Indication: NEOADJUVANT THERAPY
     Dosage: 90 MG/M2, UNK
     Route: 042
     Dates: start: 20170814, end: 20171023
  3. CYCLOPHOSPHAMIDE. [Suspect]
     Active Substance: CYCLOPHOSPHAMIDE
     Indication: NEOADJUVANT THERAPY
     Dosage: 600 MG/M2, UNK
     Route: 042
     Dates: start: 20170814, end: 20171023
  4. APREPITANT. [Concomitant]
     Active Substance: APREPITANT
     Indication: ANTIEMETIC SUPPORTIVE CARE
     Dosage: 128/80 MG
     Route: 048
     Dates: start: 20170814
  5. LONQUEX [Suspect]
     Active Substance: LIPEGFILGRASTIM
     Indication: DRUG THERAPY
     Dosage: CYCLE 2
     Dates: start: 20170906
  6. DEXAMETHASON /00016001/ [Concomitant]
     Active Substance: DEXAMETHASONE
     Indication: ANTIEMETIC SUPPORTIVE CARE
     Dosage: 12 MG, UNK
     Route: 042
     Dates: start: 20170814
  7. DEXAMETHASON /00016001/ [Concomitant]
     Active Substance: DEXAMETHASONE
     Dosage: 12 MG, UNK
     Route: 020
     Dates: start: 20170814
  8. DEXAMETHASON /00016001/ [Concomitant]
     Active Substance: DEXAMETHASONE
     Dosage: UNK
  9. AZASETRON HYDROCHLORIDE [Concomitant]
     Active Substance: AZASETRON HYDROCHLORIDE
     Indication: ANTIEMETIC SUPPORTIVE CARE
     Dosage: UNK
  10. ONDANSETRON [Concomitant]
     Active Substance: ONDANSETRON
     Indication: ANTIEMETIC SUPPORTIVE CARE
     Dosage: 8 MG, UNK
     Route: 048
     Dates: start: 20170814
  11. ONDANSETRON [Concomitant]
     Active Substance: ONDANSETRON
     Dosage: 8 MG, UNK
     Route: 042
     Dates: start: 20170814

REACTIONS (2)
  - Drug ineffective [Unknown]
  - Febrile neutropenia [Unknown]
